FAERS Safety Report 15331986 (Version 1)
Quarter: 2018Q3

REPORT INFORMATION
  Report Type: Spontaneous
  Country: JP (occurrence: JP)
  Receive Date: 20180829
  Receipt Date: 20180829
  Transmission Date: 20181010
  Serious: Yes (Other)
  Sender: FDA-Public Use
  Company Number: PHJP2018JP015346

PATIENT
  Sex: Female
  Weight: 58 kg

DRUGS (2)
  1. COSENTYX [Suspect]
     Active Substance: SECUKINUMAB
     Dosage: 300 MG, Q4W
     Route: 058
  2. COSENTYX [Suspect]
     Active Substance: SECUKINUMAB
     Indication: PSORIATIC ARTHROPATHY
     Dosage: 300 MG, QW
     Route: 058
     Dates: start: 201806

REACTIONS (10)
  - Laryngeal pain [Unknown]
  - Hyperhidrosis [Unknown]
  - Dysphonia [Unknown]
  - Pharyngeal erythema [Unknown]
  - Pharyngeal oedema [Unknown]
  - Judgement impaired [Unknown]
  - Device failure [Unknown]
  - Staphylococcal infection [Unknown]
  - Pyrexia [Unknown]
  - Vocal cord thickening [Unknown]
